FAERS Safety Report 16339207 (Version 2)
Quarter: 2019Q2

REPORT INFORMATION
  Report Type: Report from Study
  Country: US (occurrence: US)
  Receive Date: 20190521
  Receipt Date: 20190612
  Transmission Date: 20190711
  Serious: Yes (Other)
  Sender: FDA-Public Use
  Company Number: US-SHIRE-US201915994

PATIENT
  Age: 63 Year
  Sex: Female

DRUGS (1)
  1. GATTEX [Suspect]
     Active Substance: TEDUGLUTIDE\WATER
     Indication: SHORT-BOWEL SYNDROME
     Dosage: 0.32 UNK, 1X/DAY:QD
     Route: 058
     Dates: start: 20181130

REACTIONS (4)
  - Weight decreased [Recovered/Resolved]
  - Nephrolithiasis [Unknown]
  - Dehydration [Unknown]
  - Sepsis [Unknown]

NARRATIVE: CASE EVENT DATE: 201905
